FAERS Safety Report 4584749-6 (Version None)
Quarter: 2005Q1

REPORT INFORMATION
  Report Type: 
  Country: None (occurrence: None)
  Receive Date: 20050214
  Receipt Date: 20050201
  Transmission Date: 20050727
  Serious: Yes (Hospitalization, Other)
  Sender: FDA-Public Use
  Company Number: 2005023929

PATIENT
  Age: 21 Year
  Sex: Male
  Weight: 72 kg

DRUGS (3)
  1. ZOLOFT [Suspect]
     Indication: DEPRESSION
     Dosage: ORAL
     Route: 048
     Dates: start: 20040101, end: 20040101
  2. XANAX [Suspect]
     Indication: INSOMNIA
     Dates: start: 20040101, end: 20040101
  3. ALL OTHER THERAPEUTIC PRODUCTS (ALL OTHER THERAPEUTIC PRODUCTS) [Suspect]
     Indication: ILL-DEFINED DISORDER

REACTIONS (13)
  - AGGRESSION [None]
  - ANXIETY [None]
  - BIPOLAR I DISORDER [None]
  - BRUXISM [None]
  - CONDITION AGGRAVATED [None]
  - DEPRESSION [None]
  - DRUG WITHDRAWAL SYNDROME [None]
  - FEELING ABNORMAL [None]
  - INSOMNIA [None]
  - MYDRIASIS [None]
  - SCREAMING [None]
  - SOMNOLENCE [None]
  - SUICIDE ATTEMPT [None]
